FAERS Safety Report 8112679-1 (Version None)
Quarter: 2012Q1

REPORT INFORMATION
  Report Type: 
  Country: None (occurrence: None)
  Receive Date: 20120203
  Receipt Date: 20120119
  Transmission Date: 20120608
  Serious: Yes (Hospitalization)
  Sender: FDA-Public Use
  Company Number: CZ-ROCHE-1031797

PATIENT
  Sex: Male

DRUGS (49)
  1. VINCRISTINE [Suspect]
     Dosage: LAST DOSE PRIOR TO SAE 08 JUL 2011
     Route: 042
     Dates: start: 20110728
  2. PREDNISONE [Suspect]
     Dosage: LAST DOSE PRIOR TO SAE 07/JUL/2011
     Route: 048
     Dates: start: 20110707
  3. METHOTREXATE [Suspect]
     Indication: DIFFUSE LARGE B-CELL LYMPHOMA
     Dosage: LAST DOSE PRIOR TO SAE 01/AUG/2011
     Route: 042
     Dates: start: 20110729
  4. CYTARABINE [Suspect]
     Indication: DIFFUSE LARGE B-CELL LYMPHOMA
     Dosage: LAST DOSE PRIOR TO SAE 01/AUG/2011
     Route: 042
     Dates: start: 20110801
  5. PALONOSETRON [Concomitant]
     Route: 042
     Dates: start: 20110630, end: 20110630
  6. BISULEPIN HYDROCHLORIDE [Concomitant]
     Route: 042
     Dates: start: 20110630, end: 20110630
  7. OMEPRAZOLE [Concomitant]
     Route: 048
     Dates: start: 20110512
  8. FILGRASTIM [Concomitant]
     Route: 058
     Dates: start: 20110702, end: 20110714
  9. AMOXICILLIN AND CLAVULANATE POTASSIUM [Concomitant]
     Route: 042
     Dates: start: 20110809, end: 20110812
  10. TAMSULOSIN HYDROCHLORIDE [Concomitant]
     Route: 048
  11. METAMIZOLUM NATRICUM [Concomitant]
     Dates: start: 20110815, end: 20110815
  12. MABTHERA [Suspect]
     Indication: DIFFUSE LARGE B-CELL LYMPHOMA
     Dosage: LAST DOSE PRIOR TO SAE 03/JUN/2011
     Route: 042
     Dates: start: 20110602
  13. PREDNISONE [Suspect]
     Dosage: LAST DOSE PRIOR TO SAE 09/JUN/2011
     Dates: start: 20110609
  14. UROMITEXAN [Concomitant]
     Route: 042
     Dates: start: 20110603, end: 20110630
  15. UROMITEXAN [Concomitant]
     Route: 048
     Dates: start: 20110630, end: 20110630
  16. METOCLOPRAMIDE [Concomitant]
     Route: 048
     Dates: start: 20110630, end: 20110707
  17. METOCLOPRAMIDE [Concomitant]
     Dates: start: 20110603, end: 20110610
  18. COTRIM [Concomitant]
     Route: 048
     Dates: start: 20110512
  19. MABTHERA [Suspect]
     Dosage: LAST DOSE PRIOR TO SAE 30/JUN/2011
     Route: 042
     Dates: start: 20110630
  20. PREDNISONE [Suspect]
     Dosage: LAST DOSE PRIOR TO SAE 08/JUN/2011
     Dates: start: 20110608
  21. NEULASTA [Concomitant]
     Route: 058
     Dates: start: 20110604, end: 20110604
  22. OMEPRAZOLE [Concomitant]
     Route: 048
     Dates: start: 20110630, end: 20110704
  23. FILGRASTIM [Concomitant]
     Route: 058
     Dates: start: 20110802, end: 20110814
  24. MABTHERA [Suspect]
     Dosage: LAST DOSE PRIOR TO SAE 08 JUL 2011
     Route: 042
     Dates: start: 20110728
  25. VINCRISTINE [Suspect]
     Indication: DIFFUSE LARGE B-CELL LYMPHOMA
     Dosage: LAST DOSE PRIOR TO SAE 30/JUN/2011
     Route: 042
     Dates: start: 20110630
  26. VINCRISTINE [Suspect]
     Dosage: LAST DOSE PRIOR TO SAE 3/JUN/2011
     Route: 042
     Dates: start: 20110603
  27. DOXORUBICIN HYDROCHLORIDE [Suspect]
     Indication: DIFFUSE LARGE B-CELL LYMPHOMA
     Dosage: LAST DOSE PRIOR TO SAE 03/JUN/2011
     Route: 042
     Dates: start: 20110603
  28. PREDNISONE [Suspect]
     Dosage: LAST DOSE PRIOR TO SAE 05/JUL/2011
     Route: 048
     Dates: start: 20110705
  29. ACETAMINOPHEN [Concomitant]
     Route: 048
     Dates: start: 20110630, end: 20110630
  30. ALLOPURINOL [Concomitant]
     Route: 048
     Dates: start: 20110630, end: 20110704
  31. MOZOBIL [Concomitant]
     Route: 058
     Dates: start: 20110814, end: 20110814
  32. FLUCONAZOLE [Concomitant]
     Route: 048
     Dates: start: 20110512
  33. CYCLOPHOSPHAMIDE [Suspect]
     Dosage: LAST DOSE PRIOR TO SAE 30/JUN/2011
     Route: 042
     Dates: start: 20110630
  34. PREDNISONE [Suspect]
     Indication: DIFFUSE LARGE B-CELL LYMPHOMA
     Dosage: LAST DOSE PRIOR TO SAE 04/JUL/2011
     Route: 048
     Dates: start: 20110630
  35. METHOTREXATE [Suspect]
     Indication: DIFFUSE LARGE B-CELL LYMPHOMA
     Dosage: LAST DOSE PRIOR TO SAE 03/JUN/2011
     Dates: start: 20110603
  36. CISPLATIN [Suspect]
     Indication: DIFFUSE LARGE B-CELL LYMPHOMA
     Dosage: LAST DOSE PRIOR TO SAE 01/AUG/2011
     Route: 042
     Dates: start: 20110729
  37. KALIUM CHLORATUM [Concomitant]
     Route: 048
     Dates: start: 20110603, end: 20110607
  38. COTRIM [Concomitant]
     Route: 048
     Dates: start: 20110512
  39. CYCLOPHOSPHAMIDE [Suspect]
     Indication: DIFFUSE LARGE B-CELL LYMPHOMA
     Dosage: LAST DOSE PRIOR TO SAE 03/JUN/2011
     Route: 042
     Dates: start: 20110603
  40. DOXORUBICIN HYDROCHLORIDE [Suspect]
     Dosage: LAST DOSE PRIOR TO SAE 30/JUN/2011
     Route: 042
     Dates: start: 20110630
  41. PREDNISONE [Suspect]
     Dosage: LAST DOSE PRIOR TO SAE 06/JUL/2011
     Route: 048
     Dates: start: 20110706
  42. PREDNISONE [Suspect]
     Dosage: LAST DOSE PRIOR TO SAE 07/JUN/2011
     Route: 048
     Dates: start: 20110603
  43. KALIUM CHLORATUM [Concomitant]
     Route: 048
     Dates: start: 20110630, end: 20110704
  44. METAMIZOLUM NATRICUM [Concomitant]
     Route: 048
     Dates: start: 20110810, end: 20110810
  45. PREDNISONE [Suspect]
     Dosage: LAST DOSE PRIOR TO SAE 10/JUN/2011
     Dates: start: 20110610
  46. METHYLPREDNISOLONE [Suspect]
     Indication: DIFFUSE LARGE B-CELL LYMPHOMA
     Route: 042
     Dates: start: 20110729, end: 20110801
  47. ACYCLOVIR [Concomitant]
     Route: 048
     Dates: start: 20110512
  48. AMOXICILLIN AND CLAVULANATE POTASSIUM [Concomitant]
     Route: 048
     Dates: start: 20110812, end: 20110822
  49. METAMIZOLUM NATRICUM [Concomitant]
     Dates: start: 20110816, end: 20110816

REACTIONS (7)
  - MUCOSAL INFLAMMATION [None]
  - PROCTITIS [None]
  - FEBRILE NEUTROPENIA [None]
  - CELLULITIS [None]
  - BLOOD DISORDER [None]
  - URINARY RETENTION [None]
  - ESCHERICHIA SEPSIS [None]
